FAERS Safety Report 5795260-9 (Version None)
Quarter: 2008Q2

REPORT INFORMATION
  Report Type: 
  Country: None (occurrence: None)
  Receive Date: 20080601
  Receipt Date: 20080129
  Transmission Date: 20081010
  Serious: No
  Sender: FDA-Public Use
  Company Number: US200801006578

PATIENT
  Age: 47 Year
  Sex: Female
  Weight: 113.8 kg

DRUGS (16)
  1. BYETTA [Suspect]
     Indication: TYPE 2 DIABETES MELLITUS
     Dosage: 5 UG, 2/D, SUBCUTANEOUS
     Route: 058
     Dates: start: 20071201
  2. AVANDAMET [Concomitant]
  3. DRUG USED IN DIABETES [Concomitant]
  4. GLIPIZIDE [Concomitant]
  5. STARLIX [Concomitant]
  6. HYZAAR [Concomitant]
  7. VERAPAMIL [Concomitant]
  8. CRESTOR [Concomitant]
  9. TRICOR [Concomitant]
  10. ZETIA [Concomitant]
  11. PREMPRO [Concomitant]
  12. ZYRTEC [Concomitant]
  13. SUDAFED (PSEUDOPHEDRINE HYDROCHLORIDE) [Concomitant]
  14. ADVAIR DISKUS 100/50 [Concomitant]
  15. FLONASE [Concomitant]
  16. SYNTHROID [Concomitant]

REACTIONS (7)
  - DEPRESSION [None]
  - FATIGUE [None]
  - IRRITABILITY [None]
  - SEASONAL AFFECTIVE DISORDER [None]
  - SLUGGISHNESS [None]
  - TENSION [None]
  - WEIGHT DECREASED [None]
